FAERS Safety Report 7731999-3 (Version None)
Quarter: 2011Q3

REPORT INFORMATION
  Report Type: 
  Country: None (occurrence: None)
  Receive Date: 20110906
  Receipt Date: 20110721
  Transmission Date: 20111222
  Serious: No
  Sender: FDA-Public Use
  Company Number: US-AMGEN-USASP2011037253

PATIENT
  Age: 59 Year
  Sex: Female

DRUGS (9)
  1. IMITREX [Concomitant]
     Dosage: UNK UNK, PRN
  2. SOMA [Concomitant]
     Dosage: UNK
  3. PROLIA [Suspect]
     Indication: OSTEOPOROSIS POSTMENOPAUSAL
     Dosage: 60 MG, Q6MO
     Dates: start: 20110616
  4. REMERON [Concomitant]
     Dosage: 45 MG, UNK
  5. TRAZODONE HCL [Concomitant]
     Dosage: UNK
  6. CALCIUM CARBONATE [Concomitant]
  7. NORCO [Concomitant]
  8. ROZEREM [Concomitant]
     Dosage: UNK
  9. MULTIVITAMIN                       /00097801/ [Concomitant]

REACTIONS (2)
  - PRURITUS GENERALISED [None]
  - BONE PAIN [None]
